FAERS Safety Report 10883275 (Version 5)
Quarter: 2015Q2

REPORT INFORMATION
  Report Type: Spontaneous
  Country: JP (occurrence: JP)
  Receive Date: 20150303
  Receipt Date: 20150408
  Transmission Date: 20150821
  Serious: Yes (Death, Hospitalization)
  Sender: FDA-Public Use
  Company Number: JP-009507513-1503JPN000564

PATIENT
  Age: 86 Year
  Sex: Female

DRUGS (12)
  1. DEPAS [Concomitant]
     Active Substance: ETIZOLAM
     Dosage: 0.25 MG, UNK
     Route: 048
     Dates: end: 20150208
  2. BELSOMRA [Suspect]
     Active Substance: SUVOREXANT
     Indication: INSOMNIA
     Dosage: 15 MG ONCE A DAY
     Route: 048
     Dates: start: 20150126, end: 20150208
  3. LEXAPRO [Concomitant]
     Active Substance: ESCITALOPRAM OXALATE
     Dosage: 10 MG, UNK
     Route: 065
     Dates: end: 20150208
  4. BAYASPIRIN [Concomitant]
     Active Substance: ASPIRIN
     Dosage: DAILY DOSE UNKNOWN
     Route: 065
     Dates: end: 20150208
  5. NATRIX [Concomitant]
     Active Substance: INDAPAMIDE
     Dosage: 0.5 MG, UNK
     Route: 048
     Dates: end: 20150208
  6. MAGLAX (MAGNESIUM OXIDE) [Concomitant]
     Active Substance: MAGNESIUM OXIDE
     Indication: CONSTIPATION
     Dosage: UNKNOWN
     Route: 065
  7. BIOFERMIN (BACILLUS SUBTILIS (+) LACTOBACILLUS ACIDOPHILUS (+) STREPTO [Concomitant]
     Active Substance: BACILLUS SUBTILIS\LACTOBACILLUS ACIDOPHILUS\STREPTOCOCCUS FAECAIS
     Indication: DIARRHOEA
     Dosage: UNKNOWN
     Route: 065
     Dates: start: 20150202
  8. FELBINAC [Concomitant]
     Active Substance: FELBINAC
     Dosage: FORMULATION: TAP (DAILY DOSE UNKNOWN)
     Route: 062
     Dates: end: 20150208
  9. SYMBICORT [Concomitant]
     Active Substance: BUDESONIDE\FORMOTEROL FUMARATE DIHYDRATE
     Dosage: DAILY DOSE UNKNOWN
     Route: 065
     Dates: end: 20150208
  10. MEPTIN [Concomitant]
     Active Substance: PROCATEROL HYDROCHLORIDE
     Dosage: DAILY DOSE UNKNOWN
     Route: 065
     Dates: end: 20150208
  11. GOODMIN [Concomitant]
     Active Substance: BROTIZOLAM
     Dosage: 2.5 MG, UNK
     Route: 048
  12. ACINON [Concomitant]
     Active Substance: NIZATIDINE
     Indication: ABDOMINAL PAIN
     Dosage: UNKNOWN
     Route: 065
     Dates: start: 20150202

REACTIONS (5)
  - Diarrhoea [Recovered/Resolved]
  - Pneumonia [Fatal]
  - Middle insomnia [Unknown]
  - Abdominal pain [Unknown]
  - Dizziness [Unknown]

NARRATIVE: CASE EVENT DATE: 20150202
